FAERS Safety Report 26057724 (Version 1)
Quarter: 2025Q4

REPORT INFORMATION
  Report Type: Spontaneous
  Country: US (occurrence: US)
  Receive Date: 20251118
  Receipt Date: 20251118
  Transmission Date: 20260117
  Serious: Yes (Other)
  Sender: LEGACY PHARMACEUTICAL PACKAGING
  Company Number: US-LEGACY PHARMA INC. SEZC-LGP202511-000349

PATIENT

DRUGS (1)
  1. ESBRIET [Suspect]
     Active Substance: PIRFENIDONE
     Indication: Idiopathic pulmonary fibrosis
     Dosage: 267 MILLIGRAM, TID; THREE TABLETS THREE TIMES A DAY BY ORAL ROUTE
     Route: 048
     Dates: start: 202006

REACTIONS (3)
  - Urinary retention [Unknown]
  - Urine analysis abnormal [Unknown]
  - Anxiety [Unknown]
